FAERS Safety Report 10720456 (Version 1)
Quarter: 2015Q1

REPORT INFORMATION
  Report Type: Report from Study
  Country: ES (occurrence: ES)
  Receive Date: 20150119
  Receipt Date: 20150119
  Transmission Date: 20150721
  Serious: Yes (Hospitalization)
  Sender: FDA-Public Use
  Company Number: ES-SA-2015SA004207

PATIENT
  Age: 74 Year
  Sex: Female

DRUGS (4)
  1. LANTUS SOLOSTAR [Suspect]
     Active Substance: INSULIN GLARGINE
     Route: 058
     Dates: start: 201310, end: 201501
  2. SOLOSTAR [Concomitant]
     Active Substance: DEVICE
     Dates: start: 20150102
  3. SOLOSTAR [Concomitant]
     Active Substance: DEVICE
     Dates: start: 201310, end: 201501
  4. LANTUS SOLOSTAR [Suspect]
     Active Substance: INSULIN GLARGINE
     Route: 058
     Dates: start: 20150102

REACTIONS (4)
  - Vomiting [Unknown]
  - Diarrhoea [Unknown]
  - Hyperglycaemia [Not Recovered/Not Resolved]
  - Somnolence [Unknown]

NARRATIVE: CASE EVENT DATE: 2014
